FAERS Safety Report 18729147 (Version 2)
Quarter: 2022Q1

REPORT INFORMATION
  Report Type: Spontaneous
  Country: IT (occurrence: IT)
  Receive Date: 20210112
  Receipt Date: 20220120
  Transmission Date: 20220423
  Serious: Yes (Hospitalization, Other)
  Sender: FDA-Public Use
  Company Number: IT-SUN PHARMACEUTICAL INDUSTRIES LTD-2020RR-275241

PATIENT
  Age: 49 Year
  Sex: Male

DRUGS (3)
  1. CITALOPRAM [Suspect]
     Active Substance: CITALOPRAM HYDROBROMIDE
     Indication: Product used for unknown indication
     Dosage: 10 DOSAGE FORM, IN TOTAL
     Route: 048
     Dates: start: 20201218, end: 20201218
  2. TRAZODONE HYDROCHLORIDE [Suspect]
     Active Substance: TRAZODONE HYDROCHLORIDE
     Indication: Product used for unknown indication
     Dosage: 10 DOSAGE FORM, IN TOTAL
     Route: 048
     Dates: start: 20201218, end: 20201218
  3. MIRTAZAPINE [Suspect]
     Active Substance: MIRTAZAPINE
     Indication: Product used for unknown indication
     Dosage: 300 MILLIGRAM, IN TOTAL
     Route: 048
     Dates: start: 20201218, end: 20201218

REACTIONS (4)
  - Electrocardiogram QT prolonged [Recovering/Resolving]
  - Tachycardia [Recovering/Resolving]
  - Intentional overdose [Recovering/Resolving]
  - Suicide attempt [Recovering/Resolving]

NARRATIVE: CASE EVENT DATE: 20201218
